FAERS Safety Report 7439651-9 (Version None)
Quarter: 2011Q2

REPORT INFORMATION
  Report Type: 
  Country: None (occurrence: None)
  Receive Date: 20110427
  Receipt Date: 20110415
  Transmission Date: 20111010
  Serious: Yes (Hospitalization)
  Sender: FDA-Public Use
  Company Number: DE-SANOFI-AVENTIS-2011SA023191

PATIENT
  Age: 63 Year
  Sex: Male
  Weight: 70 kg

DRUGS (5)
  1. OXALIPLATIN [Suspect]
     Dosage: 50 MG/KG DAY 1, 8, 15, 22, AND 29
     Route: 042
     Dates: start: 20110208, end: 20110208
  2. FRAXIPARIN [Concomitant]
     Indication: THROMBOSIS PROPHYLAXIS
     Route: 058
     Dates: start: 20110414
  3. OXALIPLATIN [Suspect]
     Indication: RECTAL CANCER
     Route: 042
     Dates: start: 20110111, end: 20110111
  4. XELODA [Suspect]
     Indication: RECTAL CANCER
     Dosage: 825 MG/M2 D1-33 PO BID W/O WEEKENDS + OPTIONAL BOOST
     Route: 048
     Dates: start: 20110111, end: 20110215
  5. THERAPEUTIC RADIOPHARMACEUTICALS [Suspect]
     Indication: RECTAL CANCER
     Dosage: 1.8 GY PER FRACTION, TOTAL 45 GY.
     Dates: start: 20110111, end: 20110214

REACTIONS (1)
  - FAILURE TO ANASTOMOSE [None]
